FAERS Safety Report 14045013 (Version 1)
Quarter: 2017Q4

REPORT INFORMATION
  Report Type: Spontaneous
  Country: IT (occurrence: IT)
  Receive Date: 20171005
  Receipt Date: 20171005
  Transmission Date: 20180321
  Serious: Yes (Other)
  Sender: FDA-Public Use
  Company Number: IT-SUN PHARMACEUTICAL INDUSTRIES LTD-2017RR-151319

PATIENT
  Age: 40 Year
  Sex: Male

DRUGS (2)
  1. LAROXYL 40MG/ML [Suspect]
     Active Substance: AMITRIPTYLINE HYDROCHLORIDE
     Indication: DRUG USE DISORDER
     Dosage: 10 ML TOTAL
     Route: 048
     Dates: start: 20170918, end: 20170918
  2. ALPRAZOLAM. [Suspect]
     Active Substance: ALPRAZOLAM
     Indication: DRUG USE DISORDER
     Dosage: 15 ML TOTAL
     Route: 048
     Dates: start: 20170918, end: 20170918

REACTIONS (2)
  - Drug abuse [Recovering/Resolving]
  - Sopor [Recovering/Resolving]

NARRATIVE: CASE EVENT DATE: 20170918
